FAERS Safety Report 8999500 (Version 1)
Quarter: 2013Q1

REPORT INFORMATION
  Report Type: Report from Study
  Country: US (occurrence: US)
  Receive Date: 20130103
  Receipt Date: 20130103
  Transmission Date: 20140127
  Serious: Yes (Hospitalization)
  Sender: FDA-Public Use
  Company Number: US-ACTELION-A-NJ2011-58576

PATIENT
  Age: 83 Year
  Sex: Female

DRUGS (10)
  1. TRACLEER [Suspect]
     Indication: PULMONARY ARTERIAL HYPERTENSION
     Dosage: 125 MG, BID
     Route: 048
  2. TRACLEER [Suspect]
     Dosage: 62.5 MG, BID
     Route: 048
     Dates: start: 20070625
  3. TRICOR [Concomitant]
     Dosage: 48 MG, QD
  4. LIPITOR [Concomitant]
     Dosage: 10 MG, QD
  5. ECOTRIN [Concomitant]
     Dosage: 325 MG, QD
  6. FUROSEMIDE [Concomitant]
     Dosage: 20 MG, QD
  7. LORAZEPAM [Concomitant]
     Dosage: 0.25 MG, PRN
  8. TEGRETOL [Concomitant]
     Dosage: 200 MG, PRN
  9. VITAMIN B12 [Concomitant]
     Dosage: 1.25 MG, Q1WEEK
  10. METOPROLOL [Concomitant]
     Dosage: 25 MG, BID
     Dates: start: 1999

REACTIONS (3)
  - Dehydration [Recovered/Resolved]
  - Syncope [Recovered/Resolved]
  - Anxiety [None]
